FAERS Safety Report 18582462 (Version 1)
Quarter: 2020Q4

REPORT INFORMATION
  Report Type: Spontaneous
  Country: US (occurrence: US)
  Receive Date: 20201205
  Receipt Date: 20201205
  Transmission Date: 20210114
  Serious: Yes (Life-Threatening, Other)
  Sender: FDA-Public Use
  Company Number: US-MSNLABS-2020MSNLIT00418

PATIENT
  Age: 65 Year
  Sex: Male

DRUGS (12)
  1. INFLIXIMAB [Suspect]
     Active Substance: INFLIXIMAB
     Indication: VENTRICULAR TACHYCARDIA
     Route: 065
  2. METHOTREXATE. [Suspect]
     Active Substance: METHOTREXATE
     Indication: VENTRICULAR TACHYCARDIA
     Route: 065
  3. METHYLPREDNISOLONE. [Concomitant]
     Active Substance: METHYLPREDNISOLONE
     Dosage: 60 MG, DAILY
     Route: 065
  4. AMIODARONE [Concomitant]
     Active Substance: AMIODARONE
     Route: 042
  5. METHYLPREDNISOLONE. [Concomitant]
     Active Substance: METHYLPREDNISOLONE
     Route: 042
  6. AMIODARONE [Concomitant]
     Active Substance: AMIODARONE
     Route: 042
  7. METHYLPREDNISOLONE. [Concomitant]
     Active Substance: METHYLPREDNISOLONE
     Route: 042
  8. DOFETILIDE CAPSULES 500 MCG [Suspect]
     Active Substance: DOFETILIDE
     Indication: VENTRICULAR TACHYCARDIA
     Dosage: UNKNOWN
     Route: 065
  9. AMIODARONE [Concomitant]
     Active Substance: AMIODARONE
     Dosage: 60 MG DAILY
     Route: 065
  10. METHYLPREDNISOLONE. [Concomitant]
     Active Substance: METHYLPREDNISOLONE
     Dosage: 40 MG, DAILY
     Route: 065
  11. MEXILETINE [Suspect]
     Active Substance: MEXILETINE
     Indication: VENTRICULAR TACHYCARDIA
     Route: 065
  12. METHYLPREDNISOLONE. [Concomitant]
     Active Substance: METHYLPREDNISOLONE
     Route: 042

REACTIONS (1)
  - Drug ineffective [Unknown]
